FAERS Safety Report 7343193-9 (Version None)
Quarter: 2011Q1

REPORT INFORMATION
  Report Type: 
  Country: None (occurrence: None)
  Receive Date: 20110308
  Receipt Date: 20110308
  Transmission Date: 20110831
  Serious: Yes (Hospitalization)
  Sender: FDA-Public Use
  Company Number: None

PATIENT
  Sex: Male
  Weight: 15.1 kg

DRUGS (3)
  1. CYCLOPHOSPHAMIDE [Suspect]
     Dosage: 1450 MG
     Dates: end: 20110121
  2. ETOPOSIDE [Suspect]
     Dosage: 325 MG
     Dates: end: 20110121
  3. METHOTREXATE [Suspect]
     Dosage: 3224 MG
     Dates: end: 20110207

REACTIONS (3)
  - ALANINE AMINOTRANSFERASE INCREASED [None]
  - CLOSTRIDIAL INFECTION [None]
  - ASPARTATE AMINOTRANSFERASE INCREASED [None]
